FAERS Safety Report 6402120-9 (Version None)
Quarter: 2009Q4

REPORT INFORMATION
  Report Type: 
  Country: None (occurrence: None)
  Receive Date: 20091015
  Receipt Date: 20091006
  Transmission Date: 20100525
  Serious: Yes (Hospitalization)
  Sender: FDA-Public Use
  Company Number: DE-WYE-H11474009

PATIENT
  Age: 94 Year
  Sex: Female

DRUGS (12)
  1. PANTOZOL [Suspect]
     Route: 048
     Dates: start: 20090703, end: 20090713
  2. BAYPEN [Suspect]
     Route: 042
     Dates: start: 20090713, end: 20090724
  3. CITALOPRAM HYDROBROMIDE [Suspect]
     Route: 048
     Dates: start: 20090714, end: 20090722
  4. ENOXAPARIN SODIUM [Concomitant]
     Dosage: UNKNOWN
  5. CLEXANE [Concomitant]
     Route: 058
     Dates: start: 20090704, end: 20090710
  6. NITROGLYCERIN [Concomitant]
     Dosage: 400 MCG DAILY
     Route: 055
     Dates: start: 20090707, end: 20090707
  7. VOTUM [Concomitant]
     Route: 048
     Dates: start: 20030101, end: 20090702
  8. VOTUM [Concomitant]
     Route: 048
     Dates: start: 20090703, end: 20090722
  9. NOVALGIN [Concomitant]
     Route: 048
     Dates: start: 20090704, end: 20090709
  10. NOVALGIN [Concomitant]
     Route: 048
     Dates: start: 20090716, end: 20090716
  11. ARCOXIA [Suspect]
     Route: 048
     Dates: start: 20090706, end: 20090713
  12. PARACETAMOL [Suspect]
     Route: 048
     Dates: start: 20090703, end: 20090713

REACTIONS (2)
  - HEPATITIS ACUTE [None]
  - SPHINCTER OF ODDI DYSFUNCTION [None]
